FAERS Safety Report 17038885 (Version 1)
Quarter: 2019Q4

REPORT INFORMATION
  Report Type: Spontaneous
  Country: CN (occurrence: CN)
  Receive Date: 20191115
  Receipt Date: 20191115
  Transmission Date: 20200122
  Serious: Yes (Other)
  Sender: FDA-Public Use
  Company Number: CN-US WORLDMEDS, LLC-USW201911-002159

PATIENT
  Age: 34 Year
  Sex: Female

DRUGS (3)
  1. GENTAMICIN. [Concomitant]
     Active Substance: GENTAMICIN
  2. BOTULINUM TOXIN TYPE B [Suspect]
     Active Substance: RIMABOTULINUMTOXINB
     Indication: PRODUCT USED FOR UNKNOWN INDICATION
  3. PENICILLIN [Concomitant]
     Active Substance: PENICILLIN
     Route: 048

REACTIONS (1)
  - Mycobacterium abscessus infection [Recovered/Resolved]
